FAERS Safety Report 9486003 (Version 1)
Quarter: 2013Q3

REPORT INFORMATION
  Report Type: Spontaneous
  Country: US (occurrence: None)
  Receive Date: 20130827
  Receipt Date: 20130827
  Transmission Date: 20140515
  Serious: Yes (Life-Threatening, Hospitalization)
  Sender: FDA-Public Use
  Company Number: None

PATIENT
  Age: 82 Year
  Sex: Female
  Weight: 64.1 kg

DRUGS (11)
  1. PRADAXA [Suspect]
     Indication: ATRIAL FIBRILLATION
     Dosage: 150 MG EVERY 12 HOURS PO
     Route: 048
     Dates: start: 20130627, end: 20130724
  2. ASPIRIN [Concomitant]
  3. ALENDRONATE [Concomitant]
  4. VITAMIN D3 [Concomitant]
  5. CLOPIDOGREL [Concomitant]
  6. GLIPIZIDE [Concomitant]
  7. HYDROCHLOROTHIAZIDE [Concomitant]
  8. LEVOTHYROXINE [Concomitant]
  9. LISINOPRIL [Concomitant]
  10. METOPROLOL SUCCINATE [Concomitant]
  11. PIOGLITAZONE [Concomitant]

REACTIONS (5)
  - Fatigue [None]
  - Asthenia [None]
  - Hyperglycaemia [None]
  - Melaena [None]
  - Upper gastrointestinal haemorrhage [None]
